FAERS Safety Report 23129973 (Version 2)
Quarter: 2023Q4

REPORT INFORMATION
  Report Type: Report from Study
  Country: US (occurrence: US)
  Receive Date: 20231031
  Receipt Date: 20231120
  Transmission Date: 20240110
  Serious: Yes (Other)
  Sender: FDA-Public Use
  Company Number: US-ABBVIE-5468052

PATIENT
  Sex: Female

DRUGS (3)
  1. SKYRIZI [Suspect]
     Active Substance: RISANKIZUMAB-RZAA
     Indication: Psoriatic arthropathy
     Dosage: WEEK 8?SKYRIZI FORM STRENGTH: 150MG/ML
     Route: 058
     Dates: start: 20230929
  2. SKYRIZI [Suspect]
     Active Substance: RISANKIZUMAB-RZAA
     Dosage: TIME INTERVAL: TOTAL: DOSAGE: 150 MG/ML WEEK 0?SKYRIZI FORM STRENGTH: 150MG/ML
     Route: 058
     Dates: start: 20230524, end: 20230524
  3. SKYRIZI [Suspect]
     Active Substance: RISANKIZUMAB-RZAA
     Dosage: TIME INTERVAL: TOTAL: DOSAGE: 150 MG/ML WEEK 4?SKYRIZI FORM STRENGTH: 150MG/ML
     Route: 058
     Dates: start: 20230622, end: 20230622

REACTIONS (3)
  - Medical procedure [Recovered/Resolved]
  - Arthralgia [Not Recovered/Not Resolved]
  - Grip strength decreased [Unknown]

NARRATIVE: CASE EVENT DATE: 20230101
